FAERS Safety Report 16127149 (Version 1)
Quarter: 2019Q1

REPORT INFORMATION
  Report Type: Spontaneous
  Country: JP (occurrence: JP)
  Receive Date: 20190328
  Receipt Date: 20190328
  Transmission Date: 20190418
  Serious: Yes (Other)
  Sender: FDA-Public Use
  Company Number: JP-BAYER-2019-059154

PATIENT
  Sex: Male

DRUGS (13)
  1. HYDROCORTISONE ACETATE. [Concomitant]
     Active Substance: HYDROCORTISONE ACETATE
     Dosage: 00 UNK
     Route: 064
  2. NICARDIPINE HYDROCHLORIDE. [Concomitant]
     Active Substance: NICARDIPINE HYDROCHLORIDE
     Indication: BLOOD PRESSURE INCREASED
     Route: 064
  3. ADALAT CC [Concomitant]
     Active Substance: NIFEDIPINE
     Dosage: DAILY DOSE 40 MG
     Route: 064
  4. BAYASPIRIN 100 MG [Suspect]
     Active Substance: ASPIRIN
     Dosage: UNK UNK, QD
     Route: 064
  5. BAYASPIRIN 100 MG [Suspect]
     Active Substance: ASPIRIN
     Dosage: UNK UNK, QD
     Route: 064
  6. PREDNISOLONE. [Concomitant]
     Active Substance: PREDNISOLONE
     Dosage: DAILY DOSE 10 MG
     Route: 064
  7. MAGNESIUM SULFATE ANHYDROUS [Concomitant]
     Indication: HYPOTONIA
     Route: 064
  8. DALTEPARIN SODIUM [Concomitant]
     Active Substance: DALTEPARIN SODIUM
     Indication: THROMBOSIS PROPHYLAXIS
     Dosage: DAILY DOSE 5000 IU
     Route: 064
  9. ENOXAPARIN SODIUM. [Concomitant]
     Active Substance: ENOXAPARIN SODIUM
     Dosage: UNK IU, BID
     Route: 064
  10. PREDNISOLONE. [Concomitant]
     Active Substance: PREDNISOLONE
     Dosage: DAILY DOSE 13 MG
     Route: 064
  11. PREDNISOLONE. [Concomitant]
     Active Substance: PREDNISOLONE
     Dosage: DAILY DOSE 22.5 MG
     Route: 064
  12. BETAMETHASONE. [Concomitant]
     Active Substance: BETAMETHASONE
     Indication: PLATELET COUNT DECREASED
     Dosage: UNK MG, QD
     Route: 064
  13. HEPARIN [Concomitant]
     Active Substance: HEPARIN SODIUM
     Dosage: UNK
     Route: 064

REACTIONS (4)
  - Low birth weight baby [None]
  - Premature baby [None]
  - Hyperbilirubinaemia [Recovering/Resolving]
  - Foetal exposure during pregnancy [None]
